FAERS Safety Report 4774835-X (Version None)
Quarter: 2005Q3

REPORT INFORMATION
  Report Type: 
  Country: None (occurrence: None)
  Receive Date: 20050921
  Receipt Date: 20050915
  Transmission Date: 20060218
  Serious: Yes (Hospitalization)
  Sender: FDA-Public Use
  Company Number: 200512113DE

PATIENT
  Sex: 0

DRUGS (1)
  1. ARAVA [Suspect]

REACTIONS (2)
  - FATIGUE [None]
  - MALAISE [None]
